FAERS Safety Report 7475793-X (Version None)
Quarter: 2011Q2

REPORT INFORMATION
  Report Type: 
  Country: None (occurrence: None)
  Receive Date: 20110512
  Receipt Date: 20110503
  Transmission Date: 20111010
  Serious: Yes (Hospitalization)
  Sender: FDA-Public Use
  Company Number: US-AMGEN-USASP2011023104

PATIENT
  Sex: Male

DRUGS (10)
  1. VALSARTAN [Concomitant]
     Dosage: 1 MG, UNK
  2. METOPROLOL SUCCINATE [Concomitant]
     Dosage: 1 MG, UNK
  3. KEPPRA [Concomitant]
     Dosage: UNK
  4. CALCITONIN                         /00371903/ [Concomitant]
     Dosage: UNK
  5. ERGOCALCIFEROL [Concomitant]
     Dosage: UNK
  6. VITAMIN B COMPLEX                  /00003501/ [Concomitant]
     Dosage: UNK
  7. PROLIA [Suspect]
     Indication: OSTEOPOROSIS
     Dosage: UNK
  8. NAMENDA [Concomitant]
     Dosage: 1 MG, UNK
  9. CALCIUM CARBONATE [Concomitant]
     Dosage: 1 G, UNK
  10. LEVOTHYROXINE SODIUM [Concomitant]
     Dosage: 1 MG, UNK

REACTIONS (4)
  - MUSCULOSKELETAL PAIN [None]
  - PARAESTHESIA [None]
  - FALL [None]
  - HYPOAESTHESIA [None]
